FAERS Safety Report 9836813 (Version 2)
Quarter: 2014Q1

REPORT INFORMATION
  Report Type: Spontaneous
  Country: US (occurrence: US)
  Receive Date: 20140123
  Receipt Date: 20140206
  Transmission Date: 20141002
  Serious: No
  Sender: FDA-Public Use
  Company Number: US-PFIZER INC-2014014558

PATIENT
  Age: 86 Year
  Sex: Female
  Weight: 46.71 kg

DRUGS (1)
  1. PHOSPHOLINE IODIDE [Suspect]
     Indication: GLAUCOMA
     Dosage: ONE DROP IN EACH EYE TWO TIMES A DAY
     Route: 047
     Dates: start: 2013

REACTIONS (6)
  - Headache [Recovered/Resolved]
  - Eye pain [Recovered/Resolved]
  - Malaise [Not Recovered/Not Resolved]
  - Upper respiratory tract infection [Not Recovered/Not Resolved]
  - Incorrect product storage [Unknown]
  - Product container issue [Unknown]
